FAERS Safety Report 5386790-2 (Version None)
Quarter: 2007Q3

REPORT INFORMATION
  Report Type: 
  Country: None (occurrence: None)
  Receive Date: 20070713
  Receipt Date: 20070702
  Transmission Date: 20080115
  Serious: Yes (Death, Hospitalization, Other)
  Sender: FDA-Public Use
  Company Number: US-PFIZER INC-2006119526

PATIENT
  Sex: Male
  Weight: 147.4 kg

DRUGS (5)
  1. CELEBREX [Suspect]
     Indication: ARTHRITIS
     Route: 048
     Dates: start: 19990504, end: 20020702
  2. CELEBREX [Suspect]
     Indication: ARTHRALGIA
  3. BEXTRA [Suspect]
     Indication: ARTHRITIS
     Route: 048
     Dates: start: 20030101, end: 20040806
  4. BEXTRA [Suspect]
     Indication: BACK PAIN
  5. VIOXX [Suspect]
     Route: 048
     Dates: start: 20010604, end: 20030101

REACTIONS (1)
  - THROMBOEMBOLIC STROKE [None]
